FAERS Safety Report 4326677-7 (Version None)
Quarter: 2004Q1

REPORT INFORMATION
  Report Type: 
  Country: None (occurrence: None)
  Receive Date: 20040325
  Receipt Date: 20031217
  Transmission Date: 20041129
  Serious: Yes (Hospitalization)
  Sender: FDA-Public Use
  Company Number: USA031254964

PATIENT
  Age: 69 Year
  Sex: Female

DRUGS (8)
  1. FORTEO [Suspect]
     Indication: OSTEOPOROSIS
     Dosage: 20 UG/DAY
     Dates: start: 20030601
  2. THYROID TAB [Concomitant]
  3. NORVASC [Concomitant]
  4. LASIX [Concomitant]
  5. ZOLOFT [Concomitant]
  6. COUMADIN [Concomitant]
  7. AMBEIN (ZOLPIDEM TARTRATE) [Concomitant]
  8. KLOR-CON [Concomitant]

REACTIONS (5)
  - ASTHENIA [None]
  - CHEST DISCOMFORT [None]
  - DIZZINESS [None]
  - NAUSEA [None]
  - VOMITING [None]
